FAERS Safety Report 16218720 (Version 6)
Quarter: 2019Q3

REPORT INFORMATION
  Report Type: Spontaneous
  Country: US (occurrence: US)
  Receive Date: 20190419
  Receipt Date: 20190820
  Transmission Date: 20191004
  Serious: Yes (Death, Life-Threatening, Hospitalization, Disabling, Other)
  Sender: FDA-Public Use
  Company Number: US-BRISTOL-MYERS SQUIBB COMPANY-BMS-2019-035553

PATIENT
  Age: 77 Year
  Sex: Male

DRUGS (6)
  1. OPDIVO [Suspect]
     Active Substance: NIVOLUMAB
     Indication: PRODUCT USED FOR UNKNOWN INDICATION
     Dosage: 360 MILLIGRAM
     Route: 042
     Dates: start: 20181003, end: 20181107
  2. SODIUM CHLORIDE. [Concomitant]
     Active Substance: SODIUM CHLORIDE
     Indication: PRODUCT USED FOR UNKNOWN INDICATION
     Dosage: 250 MILLILITER
     Route: 042
     Dates: start: 20170809, end: 20170809
  3. OPDIVO [Suspect]
     Active Substance: NIVOLUMAB
     Indication: METASTASES TO LUNG
     Dosage: 180 MILLIGRAM
     Route: 042
     Dates: start: 20171004, end: 20180919
  4. OPDIVO [Suspect]
     Active Substance: NIVOLUMAB
     Indication: OESOPHAGEAL CARCINOMA
     Dosage: 185 MILLIGRAM
     Route: 042
     Dates: start: 20170818, end: 20170920
  5. OPDIVO [Suspect]
     Active Substance: NIVOLUMAB
     Indication: PRODUCT USED FOR UNKNOWN INDICATION
     Dosage: 340 MILLIGRAM
     Route: 042
     Dates: start: 20181212, end: 20190306
  6. SODIUM CHLORIDE. [Concomitant]
     Active Substance: SODIUM CHLORIDE
     Indication: PRODUCT USED FOR UNKNOWN INDICATION
     Dosage: 250 MILLILITER
     Route: 042
     Dates: start: 20170818, end: 20170818

REACTIONS (11)
  - Asthenia [Unknown]
  - Intentional product use issue [Unknown]
  - Fatigue [Unknown]
  - Septic shock [Unknown]
  - Malnutrition [Unknown]
  - Sepsis [Unknown]
  - Pneumonitis [Unknown]
  - Troponin increased [Unknown]
  - Hypotension [Unknown]
  - Pneumonia necrotising [Unknown]
  - Mobility decreased [Unknown]

NARRATIVE: CASE EVENT DATE: 20190415
